FAERS Safety Report 7583124 (Version 5)
Quarter: 2016Q1

REPORT INFORMATION
  Report Type: Spontaneous
  Country: US (occurrence: US)
  Receive Date: 20100914
  Receipt Date: 20160205
  Transmission Date: 20160526
  Serious: Yes (Life-Threatening, Hospitalization)
  Sender: FDA-Public Use
  Company Number: US-BAYER-201033169NA

PATIENT
  Age: 45 Year
  Sex: Female
  Weight: 80 kg

DRUGS (2)
  1. YAZ [Suspect]
     Active Substance: DROSPIRENONE\ETHINYL ESTRADIOL
     Indication: CONTRACEPTION
     Dosage: UNK UNK, UNK
     Route: 048
  2. GLUCOSAMINE [Concomitant]
     Active Substance: GLUCOSAMINE

REACTIONS (11)
  - Tremor [Recovered/Resolved]
  - Limb discomfort [Recovered/Resolved]
  - Peroneal nerve palsy [Recovered/Resolved]
  - Gait disturbance [Recovered/Resolved]
  - Fall [Recovered/Resolved]
  - Embolic stroke [Recovered/Resolved]
  - Vision blurred [Recovered/Resolved]
  - Cognitive disorder [Recovered/Resolved]
  - Fine motor skill dysfunction [Recovered/Resolved]
  - Activities of daily living impaired [None]
  - Dysgraphia [Recovered/Resolved]

NARRATIVE: CASE EVENT DATE: 20080908
